FAERS Safety Report 4612197-9 (Version None)
Quarter: 2005Q1

REPORT INFORMATION
  Report Type: 
  Country: None (occurrence: None)
  Receive Date: 20050316
  Receipt Date: 20050304
  Transmission Date: 20050727
  Serious: Yes (Other)
  Sender: FDA-Public Use
  Company Number: 2005-0008063

PATIENT
  Age: 48 Year
  Sex: Male
  Weight: 70.3075 kg

DRUGS (1)
  1. HEPSERA [Suspect]
     Indication: HEPATITIS B
     Dosage: 10 MG, 1 IN 1 D
     Dates: start: 20030107, end: 20031101

REACTIONS (2)
  - DYSPNOEA [None]
  - THROAT TIGHTNESS [None]
